FAERS Safety Report 10096597 (Version 1)
Quarter: 2014Q2

REPORT INFORMATION
  Report Type: Spontaneous
  Country: US (occurrence: US)
  Receive Date: 20140422
  Receipt Date: 20140422
  Transmission Date: 20141212
  Serious: No
  Sender: FDA-Public Use
  Company Number: US-009507513-1404USA002621

PATIENT
  Sex: Female

DRUGS (3)
  1. CLARITIN [Suspect]
     Indication: HYPERSENSITIVITY
     Route: 048
  2. CLARITIN [Suspect]
     Indication: NASAL CONGESTION
  3. CLARITIN [Suspect]
     Indication: LACRIMATION INCREASED

REACTIONS (1)
  - Drug effect decreased [Unknown]
